FAERS Safety Report 18706662 (Version 1)
Quarter: 2021Q1

REPORT INFORMATION
  Report Type: Spontaneous
  Country: US (occurrence: US)
  Receive Date: 20210105
  Receipt Date: 20210105
  Transmission Date: 20210419
  Serious: No
  Sender: FDA-Public Use
  Company Number: None

PATIENT
  Age: 70 Year
  Sex: Female

DRUGS (1)
  1. ALOGLIPTIN (ALOGLIPTIN 25MG TAB) [Suspect]
     Active Substance: ALOGLIPTIN
     Route: 048
     Dates: start: 20200625, end: 20201015

REACTIONS (3)
  - Pruritus [None]
  - Rash [None]
  - Skin irritation [None]

NARRATIVE: CASE EVENT DATE: 20201015
